FAERS Safety Report 9690695 (Version 2)
Quarter: 2014Q2

REPORT INFORMATION
  Report Type: Spontaneous
  Country: BR (occurrence: BR)
  Receive Date: 20131115
  Receipt Date: 20140425
  Transmission Date: 20141212
  Serious: Yes (Death)
  Sender: FDA-Public Use
  Company Number: BR-B.I. PHARMACEUTICALS,INC./RIDGEFIELD-2013-BI-37707BR

PATIENT
  Age: 62 Year
  Sex: Female

DRUGS (6)
  1. PRADAXA [Suspect]
     Indication: PRODUCT USED FOR UNKNOWN INDICATION
     Route: 065
     Dates: start: 2012
  2. SELOZOK [Concomitant]
     Route: 065
  3. ARADOIS [Concomitant]
     Route: 065
  4. FUROSEMIDA [Concomitant]
     Route: 065
  5. SOMALGIM [Concomitant]
     Route: 065
  6. SIMVASTATINA [Concomitant]
     Route: 065

REACTIONS (1)
  - Infarction [Fatal]
